FAERS Safety Report 10803226 (Version 6)
Quarter: 2015Q2

REPORT INFORMATION
  Report Type: Spontaneous
  Country: US (occurrence: US)
  Receive Date: 20150217
  Receipt Date: 20150602
  Transmission Date: 20150821
  Serious: Yes (Death, Life-Threatening, Hospitalization, Other)
  Sender: FDA-Public Use
  Company Number: US-009507513-1502USA007033

PATIENT
  Sex: Male
  Weight: 97.51 kg

DRUGS (2)
  1. JANUVIA [Suspect]
     Active Substance: SITAGLIPTIN PHOSPHATE
     Indication: TYPE 2 DIABETES MELLITUS
     Dosage: 100 MG, QD
     Route: 048
     Dates: start: 20110606, end: 20120430
  2. JANUVIA [Suspect]
     Active Substance: SITAGLIPTIN PHOSPHATE
     Dosage: 100 MG, QD
     Route: 048
     Dates: start: 201104

REACTIONS (58)
  - Pancreatic carcinoma metastatic [Fatal]
  - Metastases to peritoneum [Unknown]
  - Gastrointestinal haemorrhage [Unknown]
  - Gastrointestinal haemorrhage [Recovered/Resolved]
  - Aortic valve sclerosis [Unknown]
  - Pulmonary arterial hypertension [Unknown]
  - Gastrooesophageal reflux disease [Unknown]
  - Aortic arteriosclerosis [Unknown]
  - Peptic ulcer [Unknown]
  - Sleep apnoea syndrome [Unknown]
  - Pancreaticoduodenectomy [Unknown]
  - Gastric ulcer [Unknown]
  - Haemorrhoids [Unknown]
  - Asthenia [Unknown]
  - Osteoporosis [Unknown]
  - Hypertension [Unknown]
  - Anxiety [Unknown]
  - Renal cyst [Unknown]
  - Dizziness postural [Unknown]
  - Radiotherapy to abdomen [Unknown]
  - Hiccups [Unknown]
  - Gastrointestinal haemorrhage [Unknown]
  - Helicobacter infection [Unknown]
  - Osteoarthritis [Unknown]
  - Intervertebral disc degeneration [Unknown]
  - Dyslipidaemia [Unknown]
  - Oesophageal ulcer [Unknown]
  - Gastroenteritis viral [Recovering/Resolving]
  - Hepatic cyst [Unknown]
  - Thrombocytopenia [Unknown]
  - Pancreatitis [Unknown]
  - Vocal cord thickening [Unknown]
  - Peripheral vascular disorder [Unknown]
  - Lacrimal duct procedure [Unknown]
  - Arthroscopic surgery [Unknown]
  - Vascular calcification [Unknown]
  - Aortic stenosis [Unknown]
  - Hiatus hernia [Unknown]
  - Metastases to lymph nodes [Unknown]
  - Arteriosclerosis coronary artery [Unknown]
  - Adrenal mass [Unknown]
  - Depression [Unknown]
  - Blood potassium decreased [Unknown]
  - Gastric ulcer [Unknown]
  - Laparotomy [Unknown]
  - Cancer surgery [Unknown]
  - Lethargy [Unknown]
  - Hiatus hernia [Unknown]
  - Anaemia [Unknown]
  - Gastric ulcer [Unknown]
  - Coronary arterial stent insertion [Unknown]
  - Pulmonary mass [Unknown]
  - Lymphadenopathy [Unknown]
  - Hyperlipidaemia [Unknown]
  - Catheterisation cardiac [Unknown]
  - Metastases to abdominal wall [Unknown]
  - Gastritis [Unknown]
  - Vocal cord nodule removal [Unknown]

NARRATIVE: CASE EVENT DATE: 201201
